FAERS Safety Report 14475317 (Version 1)
Quarter: 2018Q1

REPORT INFORMATION
  Report Type: Spontaneous
  Country: US (occurrence: US)
  Receive Date: 20180131
  Receipt Date: 20180131
  Transmission Date: 20180509
  Serious: No
  Sender: FDA-Public Use
  Company Number: None

PATIENT
  Sex: Female

DRUGS (1)
  1. XIIDRA [Suspect]
     Active Substance: LIFITEGRAST

REACTIONS (6)
  - Eye irritation [None]
  - Drug ineffective [None]
  - Ocular hyperaemia [None]
  - Condition aggravated [None]
  - Vision blurred [None]
  - Pruritus [None]
